FAERS Safety Report 6897705-X (Version None)
Quarter: 2010Q3

REPORT INFORMATION
  Report Type: 
  Country: None (occurrence: None)
  Receive Date: 20100802
  Receipt Date: 20070712
  Transmission Date: 20110219
  Serious: Yes (Other)
  Sender: FDA-Public Use
  Company Number: US-PFIZER INC-2007058571

PATIENT
  Sex: Female
  Weight: 71 kg

DRUGS (4)
  1. LYRICA [Suspect]
     Indication: TRIGEMINAL NEURALGIA
     Dates: start: 20070501
  2. NORVASC [Concomitant]
  3. ZOCOR [Concomitant]
  4. COUMADIN [Concomitant]

REACTIONS (3)
  - DYSURIA [None]
  - GASTRIC DISORDER [None]
  - WEIGHT INCREASED [None]
